FAERS Safety Report 13968824 (Version 2)
Quarter: 2018Q4

REPORT INFORMATION
  Report Type: Spontaneous
  Country: US (occurrence: US)
  Receive Date: 20170914
  Receipt Date: 20181003
  Transmission Date: 20190204
  Serious: No
  Sender: FDA-Public Use
  Company Number: US-UPSHER-SMITH LABORATORIES, INC.-2017USL00155

PATIENT
  Sex: Female

DRUGS (1)
  1. BACLOFEN. [Suspect]
     Active Substance: BACLOFEN
     Indication: MUSCLE SPASTICITY
     Dosage: 5 MG, AS NEEDED ONCE OR TWICE A MONTH

REACTIONS (4)
  - Muscle spasticity [Unknown]
  - Drug ineffective [Unknown]
  - Fatigue [Unknown]
  - Unevaluable event [Unknown]
